FAERS Safety Report 5972534-X (Version None)
Quarter: 2008Q4

REPORT INFORMATION
  Report Type: 
  Country: None (occurrence: None)
  Receive Date: 20081201
  Receipt Date: 20081117
  Transmission Date: 20090506
  Serious: Yes (Life-Threatening, Hospitalization)
  Sender: FDA-Public Use
  Company Number: B0546648A

PATIENT
  Age: 50 Year
  Sex: Female

DRUGS (4)
  1. ZOPHREN [Suspect]
     Indication: DRUG USE FOR UNKNOWN INDICATION
     Dosage: 8MG SINGLE DOSE
     Route: 042
     Dates: start: 20081006, end: 20081006
  2. PERFUSION [Concomitant]
     Dates: start: 20081006
  3. RISPERDAL [Concomitant]
  4. NOZINAN [Concomitant]

REACTIONS (7)
  - ACIDOSIS [None]
  - BRONCHOSPASM [None]
  - HYPERCAPNIA [None]
  - HYPOTENSION [None]
  - HYPOXIA [None]
  - PSYCHOMOTOR RETARDATION [None]
  - RALES [None]
